FAERS Safety Report 4876668-2 (Version None)
Quarter: 2005Q4

REPORT INFORMATION
  Report Type: 
  Country: None (occurrence: None)
  Receive Date: 20051206
  Receipt Date: 20050824
  Transmission Date: 20060501
  Serious: No
  Sender: FDA-Public Use
  Company Number: USA0508106397

PATIENT
  Age: 84 Year
  Sex: Female

DRUGS (7)
  1. CYMBALTA [Suspect]
     Indication: NEUROPATHY PERIPHERAL
     Dosage: 30 MG
     Dates: start: 20050801
  2. ASPIRIN [Concomitant]
  3. VERAPAMIL [Concomitant]
  4. FUROSEMIDE [Concomitant]
  5. PROTONIX [Concomitant]
  6. THYROID TAB [Concomitant]
  7. VITAMINS [Concomitant]

REACTIONS (6)
  - DIARRHOEA [None]
  - HEADACHE [None]
  - MALAISE [None]
  - NAUSEA [None]
  - NERVOUSNESS [None]
  - RESTLESS LEGS SYNDROME [None]
